FAERS Safety Report 21000401 (Version 1)
Quarter: 2022Q2

REPORT INFORMATION
  Report Type: Spontaneous
  Country: US (occurrence: US)
  Receive Date: 20220623
  Receipt Date: 20220623
  Transmission Date: 20220721
  Serious: Yes (Other)
  Sender: FDA-Public Use
  Company Number: US-PFIZER INC-202200740369

PATIENT
  Age: 70 Year
  Sex: Female

DRUGS (6)
  1. VYZULTA [Suspect]
     Active Substance: LATANOPROSTENE BUNOD
     Indication: Intraocular pressure increased
     Route: 047
  2. PFIZER-BIONTECH COVID-19 VACCINE [Suspect]
     Active Substance: TOZINAMERAN
     Indication: COVID-19 immunisation
     Dosage: ARM, BNT162B2/ COVID-19 MRNA VACCINE
     Route: 030
     Dates: start: 20210115
  3. PFIZER-BIONTECH COVID-19 VACCINE [Suspect]
     Active Substance: TOZINAMERAN
     Dosage: ARM, BNT162B2/ COVID-19 MRNA VACCINE
     Route: 030
     Dates: start: 20210203
  4. PFIZER-BIONTECH COVID-19 VACCINE [Suspect]
     Active Substance: TOZINAMERAN
     Dosage: ARM, BNT162B2/ COVID-19 MRNA VACCINE
     Route: 030
     Dates: start: 20210925
  5. INFLUENZA VIRUS VACCINE QUADRIVALENT TYPE A+B [Suspect]
     Active Substance: INFLUENZA VIRUS VACCINE QUADRIVALENT TYPE A+B
     Indication: Influenza immunisation
     Dosage: FLU VACCINE VII, ON SHOULDER,?NO OF PREVIOUS DOSES- ANUAL
     Route: 065
  6. CORTISONE [Suspect]
     Active Substance: CORTISONE
     Indication: Product used for unknown indication
     Dosage: SHOTS IN HIS TOE^S
     Route: 065
     Dates: start: 202109

REACTIONS (12)
  - Visual impairment [Recovered/Resolved]
  - Optic neuritis [Unknown]
  - Cerebrovascular accident [Unknown]
  - Transient ischaemic attack [Unknown]
  - Uveitis [Unknown]
  - Iridocyclitis [Unknown]
  - Carotid artery aneurysm [Unknown]
  - Eye infection toxoplasmal [Unknown]
  - Eye infection viral [Unknown]
  - Pigment dispersion syndrome [Unknown]
  - Photophobia [Unknown]
  - Instillation site pain [Unknown]

NARRATIVE: CASE EVENT DATE: 20211005
